FAERS Safety Report 17860127 (Version 3)
Quarter: 2020Q4

REPORT INFORMATION
  Report Type: Other
  Country: AU (occurrence: AU)
  Receive Date: 20200604
  Receipt Date: 20201229
  Transmission Date: 20210113
  Serious: Yes (Hospitalization)
  Sender: FDA-Public Use
  Company Number: AU-ROCHE-2559237

PATIENT
  Age: 56 Year
  Sex: Female

DRUGS (2)
  1. OCRELIZUMAB. [Suspect]
     Active Substance: OCRELIZUMAB
     Indication: PRIMARY PROGRESSIVE MULTIPLE SCLEROSIS
     Dosage: ONGOING
     Route: 042
     Dates: start: 20180116
  2. LETROZOLE. [Concomitant]
     Active Substance: LETROZOLE
     Indication: BREAST CANCER
     Route: 048
     Dates: start: 202001

REACTIONS (2)
  - B-cell lymphoma [Not Recovered/Not Resolved]
  - Hormone receptor positive breast cancer [Not Recovered/Not Resolved]

NARRATIVE: CASE EVENT DATE: 20191120
